FAERS Safety Report 7839949-6 (Version None)
Quarter: 2011Q4

REPORT INFORMATION
  Report Type: 
  Country: None (occurrence: None)
  Receive Date: 20111025
  Receipt Date: 20111018
  Transmission Date: 20120403
  Serious: No
  Sender: FDA-Public Use
  Company Number: US-BIOGENIDEC-2011BI039862

PATIENT
  Age: 40 Year
  Sex: Female

DRUGS (3)
  1. SOLU-MEDROL [Concomitant]
     Indication: MULTIPLE SCLEROSIS RELAPSE
     Dates: start: 20110927
  2. IV ANTIBIOTICS (NOS) [Concomitant]
     Indication: BRONCHITIS
     Dates: start: 20110901
  3. TYSABRI [Suspect]
     Indication: MULTIPLE SCLEROSIS
     Route: 042
     Dates: start: 20110920

REACTIONS (4)
  - MULTIPLE SCLEROSIS RELAPSE [None]
  - FEELING ABNORMAL [None]
  - DISORIENTATION [None]
  - URINARY TRACT INFECTION [None]
